FAERS Safety Report 9459252 (Version 8)
Quarter: 2014Q4

REPORT INFORMATION
  Report Type: Report from Study
  Country: CA (occurrence: CA)
  Receive Date: 20130814
  Receipt Date: 20141124
  Transmission Date: 20150529
  Serious: Yes (Life-Threatening, Hospitalization)
  Sender: FDA-Public Use
  Company Number: CA-ROCHE-1258574

PATIENT
  Age: 42 Year
  Sex: Male

DRUGS (17)
  1. ACETAMINOPHEN. [Concomitant]
     Active Substance: ACETAMINOPHEN
     Route: 065
     Dates: start: 20130619
  2. BLOOD TRANSFUSION [Concomitant]
     Active Substance: WHOLE BLOOD
     Dosage: 2 UNITS
     Route: 065
     Dates: start: 20130719, end: 20130719
  3. IRON SUCROSE [Concomitant]
     Active Substance: IRON SUCROSE
     Indication: ANAEMIA
     Route: 065
     Dates: start: 20130711, end: 20130711
  4. LORAZEPAM. [Concomitant]
     Active Substance: LORAZEPAM
     Route: 065
     Dates: start: 20130806, end: 20130806
  5. METOCLOPRAMIDE. [Concomitant]
     Active Substance: METOCLOPRAMIDE
     Indication: DYSPHAGIA
     Route: 065
     Dates: start: 201305
  6. RABEPRAZOLE [Concomitant]
     Active Substance: RABEPRAZOLE
     Indication: GASTROOESOPHAGEAL REFLUX DISEASE
     Route: 065
     Dates: start: 201207
  7. BLOOD TRANSFUSION [Concomitant]
     Active Substance: WHOLE BLOOD
     Dosage: 1 UNIT
     Route: 065
     Dates: start: 20130711, end: 20130711
  8. SENOKOT [Concomitant]
     Active Substance: SENNOSIDES
     Indication: CONSTIPATION PROPHYLAXIS
     Route: 065
     Dates: start: 20130207
  9. DILAUDID [Concomitant]
     Active Substance: HYDROMORPHONE HYDROCHLORIDE
     Route: 065
     Dates: start: 20130401
  10. BLOOD TRANSFUSION [Concomitant]
     Active Substance: WHOLE BLOOD
     Dosage: 2 UNITS
     Route: 065
     Dates: start: 20130718, end: 20130718
  11. BLOOD TRANSFUSION [Concomitant]
     Active Substance: WHOLE BLOOD
     Indication: ANAEMIA
     Dosage: 2 UNITS
     Route: 065
     Dates: start: 20130709, end: 20130709
  12. NORMAL SALINE [Concomitant]
     Active Substance: SODIUM CHLORIDE
     Indication: DIZZINESS
     Route: 065
     Dates: start: 20130714, end: 20130715
  13. BLOOD TRANSFUSION [Concomitant]
     Active Substance: WHOLE BLOOD
     Route: 065
     Dates: start: 20130806, end: 20130806
  14. FENTANYL. [Concomitant]
     Active Substance: FENTANYL
     Route: 065
     Dates: start: 20130401
  15. TRASTUZUMAB EMTANSINE [Suspect]
     Active Substance: ADO-TRASTUZUMAB EMTANSINE
     Indication: HER-2 POSITIVE GASTRIC CANCER
     Dosage: DATE OF MOST RECENT DOSE PRIOR TO HEMATEMASIS: 01/AUG/2013
     Route: 042
     Dates: start: 20130619
  16. ADVIL [Concomitant]
     Active Substance: IBUPROFEN
  17. BLOOD TRANSFUSION [Concomitant]
     Active Substance: WHOLE BLOOD
     Dosage: 1 UNIT
     Route: 065
     Dates: start: 20130712, end: 20130712

REACTIONS (1)
  - Gastric haemorrhage [Recovered/Resolved]

NARRATIVE: CASE EVENT DATE: 20130805
